FAERS Safety Report 6710113-7 (Version None)
Quarter: 2010Q2

REPORT INFORMATION
  Report Type: 
  Country: None (occurrence: None)
  Receive Date: 20100504
  Receipt Date: 20100426
  Transmission Date: 20101027
  Serious: Yes (Death)
  Sender: FDA-Public Use
  Company Number: IT-TEVA-232339ISR

PATIENT
  Age: 8 Month
  Sex: Female

DRUGS (2)
  1. CARBOPLATIN [Suspect]
  2. ETOPOSIDE [Suspect]

REACTIONS (5)
  - DEATH [None]
  - DISSEMINATED INTRAVASCULAR COAGULATION [None]
  - PANCYTOPENIA [None]
  - PYREXIA [None]
  - VENOOCCLUSIVE DISEASE [None]
